FAERS Safety Report 20203458 (Version 1)
Quarter: 2021Q4

REPORT INFORMATION
  Report Type: Report from Study
  Country: AU (occurrence: AU)
  Receive Date: 20211218
  Receipt Date: 20211218
  Transmission Date: 20220303
  Serious: Yes (Hospitalization)
  Sender: FDA-Public Use
  Company Number: 21P-008-3867485-00

PATIENT

DRUGS (28)
  1. PEGASPARGASE [Suspect]
     Active Substance: PEGASPARGASE
     Indication: Acute lymphocytic leukaemia
     Dosage: 2500 IU/M?
     Route: 042
     Dates: start: 20210302, end: 20210302
  2. VENETOCLAX [Suspect]
     Active Substance: VENETOCLAX
     Indication: Acute lymphocytic leukaemia
     Dosage: 200 MG, QD
     Route: 048
     Dates: start: 20210302, end: 20210302
  3. VENETOCLAX [Suspect]
     Active Substance: VENETOCLAX
     Dosage: 400 MG, QD
     Route: 048
     Dates: start: 20210303, end: 20210308
  4. VENETOCLAX [Suspect]
     Active Substance: VENETOCLAX
     Dosage: 400 MG, QD
     Route: 048
     Dates: start: 20210309, end: 20210418
  5. VINCRISTINE SULFATE [Suspect]
     Active Substance: VINCRISTINE SULFATE
     Indication: Acute lymphocytic leukaemia
     Dosage: 2 MG
     Route: 042
     Dates: start: 20210305, end: 20210305
  6. CYTARABINE [Suspect]
     Active Substance: CYTARABINE
     Indication: Acute lymphocytic leukaemia
     Dosage: 75 MG/M?, QD
     Route: 058
     Dates: start: 20210317, end: 20210320
  7. CYTARABINE [Suspect]
     Active Substance: CYTARABINE
     Dosage: 75 MG/M?, QD
     Route: 058
     Dates: start: 20210406, end: 20210409
  8. CYCLOPHOSPHAMIDE [Suspect]
     Active Substance: CYCLOPHOSPHAMIDE
     Indication: Acute lymphocytic leukaemia
     Dosage: 1000 MG/M?
     Route: 065
     Dates: start: 20210413, end: 20210413
  9. MERCAPTOPURINE [Suspect]
     Active Substance: MERCAPTOPURINE
     Indication: Acute lymphocytic leukaemia
     Dosage: 75 MG, 4X A WEEK
     Route: 048
     Dates: start: 20210317, end: 20210321
  10. MERCAPTOPURINE [Suspect]
     Active Substance: MERCAPTOPURINE
     Dosage: 100 MG, 3X A WEEK
     Route: 048
  11. METHOTREXATE SODIUM [Suspect]
     Active Substance: METHOTREXATE SODIUM
     Indication: Acute lymphocytic leukaemia
     Dosage: 12 MG, STAT
     Route: 037
     Dates: start: 20210309, end: 20210309
  12. TN UNSPECIFIED [Concomitant]
     Indication: Acute lymphocytic leukaemia
     Dosage: 44 MG, EVERY 1 WEEK
     Route: 042
     Dates: start: 20210305, end: 20210305
  13. TN UNSPECIFIED [Concomitant]
     Indication: Dental disorder prophylaxis
     Dosage: 4 ML, QD
     Route: 048
     Dates: start: 20210302
  14. TN UNSPECIFIED [Concomitant]
     Indication: Pain in jaw
     Dosage: 5.3 MG, PRN
     Route: 048
  15. TN UNSPECIFIED [Concomitant]
     Indication: Pain in extremity
  16. TN UNSPECIFIED [Concomitant]
     Indication: Back pain
  17. TN UNSPECIFIED [Concomitant]
     Indication: Blood triglycerides increased
     Dosage: 2700 MG, QD
     Route: 048
     Dates: start: 20210319
  18. TN UNSPECIFIED [Concomitant]
     Indication: Neutropenia
     Dosage: 250 ?G, QD
     Dates: start: 20210322
  19. TN UNSPECIFIED [Concomitant]
     Indication: White blood cell count decreased
  20. BACTRIM [Concomitant]
     Active Substance: SULFAMETHOXAZOLE\TRIMETHOPRIM
     Indication: Pneumocystis jirovecii pneumonia
     Dosage: 800/160MG, THRICE PER WEEK
     Route: 048
     Dates: start: 20210312
  21. TN UNSPECIFIED [Concomitant]
     Indication: Prophylaxis of nausea and vomiting
     Dosage: 7 MG, PRN
     Dates: start: 20210205
  22. TN UNSPECIFIED [Concomitant]
     Dosage: 6 MG, PRN
     Route: 048
     Dates: start: 20210312
  23. TN UNSPECIFIED [Concomitant]
     Indication: Pain in jaw
     Dosage: 750-790 MG, PRN
     Route: 048
     Dates: start: 20210210
  24. TN UNSPECIFIED [Concomitant]
     Indication: Back pain
  25. TN UNSPECIFIED [Concomitant]
     Indication: Pain in extremity
  26. TN UNSPECIFIED [Concomitant]
     Indication: Pyrexia
  27. Osmolax [Concomitant]
     Indication: Constipation
     Dosage: 17 G, QD
     Route: 048
     Dates: start: 20210221
  28. TN UNSPECIFIED [Concomitant]
     Indication: Dental disorder prophylaxis
     Dosage: 40 ML, QD
     Route: 048
     Dates: start: 20210302

REACTIONS (1)
  - Anaemia [Recovered/Resolved]

NARRATIVE: CASE EVENT DATE: 20210419
